FAERS Safety Report 8211475-4 (Version None)
Quarter: 2012Q1

REPORT INFORMATION
  Report Type: 
  Country: None (occurrence: None)
  Receive Date: 20120315
  Receipt Date: 20120308
  Transmission Date: 20120608
  Serious: Yes (Hospitalization, Other)
  Sender: FDA-Public Use
  Company Number: CA-PFIZER INC-2012062298

PATIENT
  Sex: Female

DRUGS (1)
  1. VARENICLINE TARTRATE [Suspect]
     Indication: SMOKING CESSATION THERAPY
     Dosage: UNK
     Dates: end: 20120101

REACTIONS (6)
  - SUICIDAL IDEATION [None]
  - INSOMNIA [None]
  - AGITATED DEPRESSION [None]
  - EMOTIONAL DISTRESS [None]
  - NEOPLASM MALIGNANT [None]
  - SUICIDE ATTEMPT [None]
